FAERS Safety Report 6862646-0 (Version None)
Quarter: 2010Q3

REPORT INFORMATION
  Report Type: 
  Country: None (occurrence: None)
  Receive Date: 20100716
  Receipt Date: 20100702
  Transmission Date: 20110219
  Serious: Yes (Other)
  Sender: FDA-Public Use
  Company Number: 1000015021

PATIENT
  Age: 82 Year
  Sex: Female

DRUGS (14)
  1. MEMANTINE HCL [Suspect]
     Indication: DEMENTIA
     Dosage: 10 MG (10 MG, 1 IN 1 D), ORAL
     Route: 048
     Dates: start: 20090401, end: 20100315
  2. LYSANXIA (TABLETS) [Suspect]
     Indication: ANXIETY
     Dosage: 10 MG (10 MG, 1 IN 1 D), ORAL
     Route: 048
     Dates: start: 20081216, end: 20100102
  3. VASTAREL (TABLETS) [Concomitant]
  4. ISOPTINE (TABLETS) [Concomitant]
  5. FLECAINE (CAPSULES) [Concomitant]
  6. PLAVIX [Concomitant]
  7. TANGANIL (TABLETS) [Concomitant]
  8. DEBRIDAT (TABLETS) [Concomitant]
  9. DEROXAT (TABLETS) [Concomitant]
  10. FORLAX (POWDER) [Concomitant]
  11. EFFERALGAN (TABLETS) [Concomitant]
  12. REMINYL (CAPSULES) [Concomitant]
  13. DIVARIUS (TABLETS) [Concomitant]
  14. SERESTA (TABLETS) [Concomitant]

REACTIONS (6)
  - BALANCE DISORDER [None]
  - COGNITIVE DISORDER [None]
  - CONDITION AGGRAVATED [None]
  - DISORIENTATION [None]
  - NAUSEA [None]
  - VERTIGO [None]
